FAERS Safety Report 20012636 (Version 1)
Quarter: 2021Q4

REPORT INFORMATION
  Report Type: Spontaneous
  Country: DE (occurrence: DE)
  Receive Date: 20211029
  Receipt Date: 20211029
  Transmission Date: 20220303
  Serious: Yes (Other)
  Sender: FDA-Public Use
  Company Number: DE-BRISTOL-MYERS SQUIBB COMPANY-BMS-2021-110367

PATIENT

DRUGS (5)
  1. OPDIVO [Suspect]
     Active Substance: NIVOLUMAB
     Indication: Non-small cell lung cancer
     Dosage: UNAVAILABLE
     Route: 065
     Dates: start: 201810
  2. CARBOPLATIN;PEMETREXED [Concomitant]
     Indication: Product used for unknown indication
     Dosage: UNK
     Route: 065
     Dates: start: 201703
  3. DOCETAXEL;NINTEDANIB [Concomitant]
     Indication: Product used for unknown indication
  4. AMOXICILLIN [Concomitant]
     Active Substance: AMOXICILLIN
     Indication: Product used for unknown indication
     Dosage: 3 MONTHS
     Route: 065
  5. BUDESONIDE [Concomitant]
     Active Substance: BUDESONIDE
     Indication: Product used for unknown indication
     Route: 061

REACTIONS (5)
  - Colitis [Unknown]
  - Hepatocellular carcinoma [Unknown]
  - Hepatic cirrhosis [Unknown]
  - Cough [Unknown]
  - Lipase increased [Unknown]

NARRATIVE: CASE EVENT DATE: 20190101
